FAERS Safety Report 9855806 (Version 1)
Quarter: 2013Q4

REPORT INFORMATION
  Report Type: Spontaneous
  Country: US (occurrence: None)
  Receive Date: 20131226
  Receipt Date: 20131226
  Transmission Date: 20140711
  Serious: No
  Sender: FDA-Public Use
  Company Number: PHEH2013US017962

PATIENT
  Sex: 0

DRUGS (2)
  1. GILENYA (FINGOLIMOD) CAPSULE [Suspect]
     Indication: MULTIPLE SCLEROSIS
     Route: 048
     Dates: start: 20130822
  2. IMURAN (AZATHIOPRINE) [Concomitant]

REACTIONS (3)
  - Ventricular extrasystoles [None]
  - Supraventricular extrasystoles [None]
  - Heart rate decreased [None]
